FAERS Safety Report 6003069-6 (Version None)
Quarter: 2008Q4

REPORT INFORMATION
  Report Type: 
  Country: None (occurrence: None)
  Receive Date: 20081216
  Receipt Date: 20081205
  Transmission Date: 20090506
  Serious: Yes (Other)
  Sender: FDA-Public Use
  Company Number: DE-RANBAXY-2008RR-19810

PATIENT
  Age: 70 Year
  Sex: Female

DRUGS (5)
  1. OFLOXACIN-RATIOPHARM 400MG FILMTABLETTEN [Suspect]
     Dosage: 2 DF, UNK
     Route: 048
     Dates: start: 20081113, end: 20081114
  2. EPHEDRINE HCL 1PC SOL [Concomitant]
  3. AMBROXOL [Concomitant]
  4. WOBENZYM [Concomitant]
  5. SINUPRET [Concomitant]

REACTIONS (5)
  - ABNORMAL DREAMS [None]
  - AGITATION [None]
  - ANXIETY [None]
  - BALANCE DISORDER [None]
  - ILLUSION [None]
